FAERS Safety Report 11186021 (Version 1)
Quarter: 2015Q2

REPORT INFORMATION
  Report Type: Spontaneous
  Country: US (occurrence: US)
  Receive Date: 20150612
  Receipt Date: 20150612
  Transmission Date: 20150821
  Serious: Yes (Hospitalization)
  Sender: FDA-Public Use
  Company Number: US-ELI_LILLY_AND_COMPANY-US201506001447

PATIENT
  Sex: Female

DRUGS (5)
  1. ANCEF [Concomitant]
     Active Substance: CEFAZOLIN SODIUM
     Route: 065
  2. FLAGYL [Concomitant]
     Active Substance: METRONIDAZOLE\METRONIDAZOLE HYDROCHLORIDE
     Route: 065
  3. SALBUTAMOL [Concomitant]
     Active Substance: ALBUTEROL
  4. PRENATABS RX [Concomitant]
     Active Substance: VITAMINS
  5. PROZAC [Suspect]
     Active Substance: FLUOXETINE HYDROCHLORIDE
     Indication: DEPRESSION
     Dosage: 40 MG, UNKNOWN
     Route: 065

REACTIONS (2)
  - Premature labour [Recovered/Resolved]
  - Exposure during pregnancy [Recovered/Resolved]
